FAERS Safety Report 4523102-8 (Version None)
Quarter: 2004Q4

REPORT INFORMATION
  Report Type: 
  Country: None (occurrence: None)
  Receive Date: 20041208
  Receipt Date: 20041126
  Transmission Date: 20050328
  Serious: Yes (Other)
  Sender: FDA-Public Use
  Company Number: 2004101091

PATIENT
  Age: 72 Year
  Sex: Male
  Weight: 44.5 kg

DRUGS (5)
  1. CABERGOLINE [Suspect]
     Indication: PARKINSON'S DISEASE
     Dosage: 2 MG (2 MG, 1 IN 1 D), ORAL
     Route: 048
     Dates: start: 20010619, end: 20010710
  2. SINEMET [Concomitant]
  3. BROMOCRIPTINE MESYLATE [Concomitant]
  4. TRIHEXYPHENIDYL HCL [Concomitant]
  5. CLONAZEPAM [Concomitant]

REACTIONS (5)
  - CONDITION AGGRAVATED [None]
  - DEMENTIA [None]
  - DYSPHAGIA [None]
  - PNEUMONIA ASPIRATION [None]
  - RESTLESSNESS [None]
